FAERS Safety Report 6208764-1 (Version None)
Quarter: 2009Q2

REPORT INFORMATION
  Report Type: 
  Country: None (occurrence: None)
  Receive Date: 20090522
  Receipt Date: 20090204
  Transmission Date: 20091009
  Serious: No
  Sender: FDA-Public Use
  Company Number: 8042513

PATIENT
  Age: 34 Year
  Sex: Female
  Weight: 58.9 kg

DRUGS (3)
  1. CIMZIA [Suspect]
     Indication: CROHN'S DISEASE
     Dosage: 400 MG SC
     Route: 058
     Dates: start: 20081001
  2. COLESTIPOL HYDROCHLORIDE [Concomitant]
  3. PROMETHAZINE [Concomitant]

REACTIONS (3)
  - IMPETIGO [None]
  - NAUSEA [None]
  - PHARYNGITIS STREPTOCOCCAL [None]
